FAERS Safety Report 9369475 (Version 2)
Quarter: 2013Q4

REPORT INFORMATION
  Report Type: Spontaneous
  Country: US (occurrence: US)
  Receive Date: 20130626
  Receipt Date: 20131226
  Transmission Date: 20140711
  Serious: No
  Sender: FDA-Public Use
  Company Number: US-PFIZER INC-2013189680

PATIENT
  Age: 47 Year
  Sex: Female

DRUGS (7)
  1. ZOLOFT [Suspect]
     Dosage: UNK
  2. METFORMIN HCL [Suspect]
     Dosage: 500 MG, UNK
  3. PRISTIQ [Suspect]
     Dosage: UNK
  4. HYDROCHLOROTHIAZIDE [Suspect]
     Dosage: 25 MG, UNK
  5. LISINOPRIL [Suspect]
     Dosage: 20 MG, UNK
  6. MOTRIN [Suspect]
     Dosage: 800 MG, 3X/DAY (PRN)
  7. PROPRANOLOL [Suspect]
     Dosage: 80 MG, UNK

REACTIONS (1)
  - Drug hypersensitivity [Unknown]
